FAERS Safety Report 21984810 (Version 3)
Quarter: 2023Q1

REPORT INFORMATION
  Report Type: Spontaneous
  Country: JP (occurrence: JP)
  Receive Date: 20230213
  Receipt Date: 20230222
  Transmission Date: 20230417
  Serious: Yes (Life-Threatening, Hospitalization, Other)
  Sender: FDA-Public Use
  Company Number: JP-CLGN-JP-CLI-2022-004220

PATIENT
  Age: 16 Year
  Sex: Male

DRUGS (49)
  1. DAUNORUBICIN HYDROCHLORIDE [Suspect]
     Active Substance: DAUNORUBICIN HYDROCHLORIDE
     Indication: Precursor T-lymphoblastic lymphoma/leukaemia
     Dosage: RE-INDUCTION (14W3D) 30 MG/M2 D15-16
  2. DAUNORUBICIN HYDROCHLORIDE [Suspect]
     Active Substance: DAUNORUBICIN HYDROCHLORIDE
     Dosage: RE-INDUCTION (14W3D) 50 MG/M2 D1, 2
  3. DOXORUBICIN HYDROCHLORIDE [Suspect]
     Active Substance: DOXORUBICIN HYDROCHLORIDE
     Indication: Precursor T-lymphoblastic lymphoma/leukaemia
     Dosage: BRIDGING TO CONDITIONING (18W6D), ON D1, 15
  4. DOXORUBICIN HYDROCHLORIDE [Suspect]
     Active Substance: DOXORUBICIN HYDROCHLORIDE
     Dosage: INDUCTION (0W0D), ON D1
  5. DOXORUBICIN HYDROCHLORIDE [Suspect]
     Active Substance: DOXORUBICIN HYDROCHLORIDE
     Dosage: BRIDGING TO CONDITIONING (18W6D), ON D2, 16
  6. MILRINONE [Suspect]
     Active Substance: MILRINONE
     Dosage: 0.45 UG/KG, CYCLIC (EVERY 1 MIN)
  7. MILRINONE [Suspect]
     Active Substance: MILRINONE
     Dosage: 0.3 UG/KG, CYCLIC (EVERY 1 MIN)
  8. MILRINONE [Suspect]
     Active Substance: MILRINONE
     Dosage: 0.5 UG/KG, CYCLIC (EVERY 1 MIN)
  9. MILRINONE [Suspect]
     Active Substance: MILRINONE
     Dosage: 0.4 UG/KG, CYCLIC (EVERY 1 MIN)
  10. MILRINONE [Suspect]
     Active Substance: MILRINONE
     Dosage: 0.6 UG/KG, CYCLIC (EVERY 1 MIN)
  11. MILRINONE [Suspect]
     Active Substance: MILRINONE
     Dosage: 0.1 UG/KG, CYCLIC (EVERY 1 MIN)
  12. MILRINONE [Suspect]
     Active Substance: MILRINONE
     Dosage: 0.2 UG/KG, CYCLIC (EVERY 1 MIN)
  13. PIRARUBICIN HYDROCHLORIDE [Suspect]
     Active Substance: PIRARUBICIN HYDROCHLORIDE
     Indication: Precursor T-lymphoblastic lymphoma/leukaemia
     Dosage: CONSOLIDATION (5W3D), 25 MG/M2 D1, 2
  14. DOBUTAMINE [Suspect]
     Active Substance: DOBUTAMINE HYDROCHLORIDE
     Dosage: 2 UG/KG, CYCLIC (EVERY 1 MIN)
  15. DOBUTAMINE [Suspect]
     Active Substance: DOBUTAMINE HYDROCHLORIDE
     Dosage: 4 UG/KG, CYCLIC (EVERY 1 MIN)
  16. DOBUTAMINE [Suspect]
     Active Substance: DOBUTAMINE HYDROCHLORIDE
     Dosage: 5 UG/KG, CYCLIC (EVERY 1 MIN)
  17. DOBUTAMINE [Suspect]
     Active Substance: DOBUTAMINE HYDROCHLORIDE
     Dosage: 1 UG/KG, CYCLIC (EVERY 1 MIN)
  18. DOBUTAMINE [Suspect]
     Active Substance: DOBUTAMINE HYDROCHLORIDE
     Dosage: 3 UG/KG, CYCLIC (EVERY 1 MIN)
  19. DOBUTAMINE [Suspect]
     Active Substance: DOBUTAMINE HYDROCHLORIDE
     Dosage: 1.5 UG/KG, CYCLIC (EVERY 1 MIN)
  20. DOBUTAMINE [Suspect]
     Active Substance: DOBUTAMINE HYDROCHLORIDE
     Dosage: 3 UG/KG, CYCLIC (EVERY 1 MIN)
  21. CYCLOPHOSPHAMIDE [Suspect]
     Active Substance: CYCLOPHOSPHAMIDE
     Indication: Precursor T-lymphoblastic lymphoma/leukaemia
     Dosage: BRIDGING TO CONDITIONING (18W6D), ON D1, 2, 15, 16
  22. CYCLOPHOSPHAMIDE [Suspect]
     Active Substance: CYCLOPHOSPHAMIDE
     Dosage: CONDITIONING REGIMEN (22W0D), ON D-8, -7
  23. CYCLOPHOSPHAMIDE [Suspect]
     Active Substance: CYCLOPHOSPHAMIDE
     Dosage: CONSOLIDATION (5W3D), ON D1, 8
  24. CYCLOPHOSPHAMIDE [Suspect]
     Active Substance: CYCLOPHOSPHAMIDE
     Dosage: RE-INDUCTION (14W3D), ON D15-16
  25. CYCLOPHOSPHAMIDE [Suspect]
     Active Substance: CYCLOPHOSPHAMIDE
     Dosage: RE-INDUCTION (14W3D), ON D1
  26. CYCLOPHOSPHAMIDE [Suspect]
     Active Substance: CYCLOPHOSPHAMIDE
     Dosage: INDUCTION (0W0D), ON DAY 1
  27. PREDNISOLONE [Concomitant]
     Active Substance: PREDNISOLONE
     Indication: Precursor T-lymphoblastic lymphoma/leukaemia
     Dosage: RE-INDUCTION (14W3D), 90 MG/M2 FROM 3 DAYS BEFORE D1 TO D5
  28. PREDNISOLONE [Concomitant]
     Active Substance: PREDNISOLONE
     Dosage: INDUCTION (0W0D), 60 MG/M2 D1-5
  29. MEROPENEM [Concomitant]
     Active Substance: MEROPENEM
     Indication: Pyrexia
     Dosage: UNK
  30. METHOTREXATE [Concomitant]
     Active Substance: METHOTREXATE
     Indication: Precursor T-lymphoblastic lymphoma/leukaemia
     Dosage: SANCTUARY (10W1D), 15 MG/BODY D 2, 9
  31. METHOTREXATE [Concomitant]
     Active Substance: METHOTREXATE
     Dosage: INDUCTION (0W0D), 15 MG/BODY D8, 22
     Route: 037
  32. METHOTREXATE [Concomitant]
     Active Substance: METHOTREXATE
     Dosage: CONSOLIDATION (5W3D), 15 MG/BODY D1, 8
     Route: 037
  33. METHOTREXATE [Concomitant]
     Active Substance: METHOTREXATE
     Dosage: SANCTUARY (10W1D), 3,000 MG/M2 D1, 8
  34. DEXAMETHASONE [Concomitant]
     Active Substance: DEXAMETHASONE
     Indication: Precursor T-lymphoblastic lymphoma/leukaemia
     Dosage: SANCTUARY (10W1D)3.3 MG/BODY D2, 9
  35. DEXAMETHASONE [Concomitant]
     Active Substance: DEXAMETHASONE
     Dosage: INDUCTION (0W0D)3.3 MG/BODY D8, 22
  36. DEXAMETHASONE [Concomitant]
     Active Substance: DEXAMETHASONE
     Dosage: CONSOLIDATION (5W3D)3.3 MG/BODY D1, 8
  37. CYTARABINE [Concomitant]
     Active Substance: CYTARABINE
     Indication: Precursor T-lymphoblastic lymphoma/leukaemia
     Dosage: CONSOLIDATION (5W3D), 75 MG/M2 D1-6, 8-13
  38. MERCAPTOPURINE [Concomitant]
     Active Substance: MERCAPTOPURINE
     Indication: Precursor T-lymphoblastic lymphoma/leukaemia
     Dosage: CONSOLIDATION (5W3D), 50 MG/M2 D1-14
  39. TACROLIMUS [Concomitant]
     Active Substance: TACROLIMUS
     Indication: Immunosuppressant drug therapy
     Dosage: UNK
     Route: 042
  40. VINCRISTINE [Concomitant]
     Active Substance: VINCRISTINE
     Indication: Precursor T-lymphoblastic lymphoma/leukaemia
     Dosage: INDUCTION (0W0D) 2 MG/BODY D1, 8, 14, 22, 2
  41. VINCRISTINE [Concomitant]
     Active Substance: VINCRISTINE
     Dosage: RE-INDUCTION (14W3D) 2 MG/BODY D1, 8, 15, 2
  42. VINCRISTINE [Concomitant]
     Active Substance: VINCRISTINE
     Dosage: BRIDGING TO CONDITIONING (18W6D) 2 MG/BODY D1, 15
  43. ASPARAGINASE [Concomitant]
     Active Substance: ASPARAGINASE
     Indication: Precursor T-lymphoblastic lymphoma/leukaemia
     Dosage: RE-INDUCTION (14W3D), 5000 U/BODY D8, 10, 12
  44. ASPARAGINASE [Concomitant]
     Active Substance: ASPARAGINASE
     Dosage: INDUCTION (0W0D), 6,000 U/M2 D8, 10, 12, 14, 16, 18, 20, 2
  45. VANCOMYCIN [Concomitant]
     Active Substance: VANCOMYCIN
     Indication: Bacterial infection
     Dosage: UNK
  46. ETOPOSIDE [Concomitant]
     Active Substance: ETOPOSIDE
     Indication: Precursor T-lymphoblastic lymphoma/leukaemia
     Dosage: CONDITIONING REGIMEN (22W0D), 15 MG/KG D-10, -9
  47. ETOPOSIDE [Concomitant]
     Active Substance: ETOPOSIDE
     Dosage: RE-INDUCTION (14W3D), 100 MG/M2 D17-19
  48. NOREPINEPHRINE [Concomitant]
     Active Substance: NOREPINEPHRINE
     Dosage: 0.03 UG/KG, CYCLIC (EVERY 1 MIN)
  49. NOREPINEPHRINE [Concomitant]
     Active Substance: NOREPINEPHRINE
     Dosage: 0.05 UG/KG, CYCLIC (EVERY 1 MIN)

REACTIONS (3)
  - Tachycardia [Recovering/Resolving]
  - Cardiomyopathy [Recovering/Resolving]
  - Cardiac failure acute [Recovering/Resolving]
